FAERS Safety Report 16034123 (Version 2)
Quarter: 2019Q1

REPORT INFORMATION
  Report Type: Spontaneous
  Country: US (occurrence: US)
  Receive Date: 20190305
  Receipt Date: 20190312
  Transmission Date: 20190418
  Serious: Yes (Other)
  Sender: FDA-Public Use
  Company Number: US-CIPLA LTD.-2019US01269

PATIENT

DRUGS (6)
  1. GABAPENTIN. [Suspect]
     Active Substance: GABAPENTIN
     Indication: MYALGIA
  2. GABAPENTIN. [Suspect]
     Active Substance: GABAPENTIN
     Indication: SLEEP DISORDER
  3. GABAPENTIN. [Suspect]
     Active Substance: GABAPENTIN
     Indication: ARTHRALGIA
     Dosage: 300 MILLIGRAM IN THE MORNING AND 1200 MILLIGRAM AT NIGHT
     Route: 048
  4. DONEPEZIL. [Concomitant]
     Active Substance: DONEPEZIL
     Indication: CONFUSIONAL STATE
     Dosage: 5 MILLIGRAM, QD, TABLET
     Route: 065
  5. ADVIL (MEFENAMIC ACID) [Suspect]
     Active Substance: MEFENAMIC ACID
     Indication: PAIN
     Dosage: 800 MILLIGRAM, TID (EVERY 8 HOURS)
     Route: 048
  6. DONEPEZIL. [Concomitant]
     Active Substance: DONEPEZIL
     Indication: MEMORY IMPAIRMENT

REACTIONS (3)
  - Rash generalised [Unknown]
  - Alopecia [Unknown]
  - Drug ineffective [Unknown]
